FAERS Safety Report 11253467 (Version 1)
Quarter: 2015Q3

REPORT INFORMATION
  Report Type: Spontaneous
  Country: US (occurrence: None)
  Receive Date: 20150708
  Receipt Date: 20150708
  Transmission Date: 20151125
  Serious: No
  Sender: FDA-Public Use
  Company Number: None

PATIENT
  Age: 32 Year
  Sex: Male
  Weight: 78 kg

DRUGS (1)
  1. MAGNEVIST [Suspect]
     Active Substance: GADOPENTETATE DIMEGLUMINE
     Indication: NUCLEAR MAGNETIC RESONANCE IMAGING
     Dosage: 14 ML, BOLUS
     Route: 042

REACTIONS (6)
  - Hypersensitivity [None]
  - Lacrimation increased [None]
  - Pruritus [None]
  - Sneezing [None]
  - Wheezing [None]
  - Contrast media reaction [None]

NARRATIVE: CASE EVENT DATE: 20150512
